FAERS Safety Report 4843016-3 (Version None)
Quarter: 2005Q4

REPORT INFORMATION
  Report Type: 
  Country: None (occurrence: None)
  Receive Date: 20051130
  Receipt Date: 20051121
  Transmission Date: 20060501
  Serious: Yes (Other)
  Sender: FDA-Public Use
  Company Number: B0401695A

PATIENT
  Age: 10 Year
  Sex: Female

DRUGS (2)
  1. LAMICTAL [Suspect]
     Indication: CONVULSION
     Dosage: SEE DOSAGE TEXT
  2. CARBAMAZEPINE [Concomitant]

REACTIONS (9)
  - AGITATION [None]
  - CONVERSION DISORDER [None]
  - CONVULSION [None]
  - CRYING [None]
  - ELECTROENCEPHALOGRAM ABNORMAL [None]
  - FEAR [None]
  - IRRITABILITY [None]
  - MOOD ALTERED [None]
  - RESTLESSNESS [None]
